FAERS Safety Report 12698574 (Version 1)
Quarter: 2016Q3

REPORT INFORMATION
  Report Type: Other
  Country: None (occurrence: TR)
  Receive Date: 20160830
  Receipt Date: 20160830
  Transmission Date: 20161109
  Serious: Yes (Hospitalization)
  Sender: FDA-Public Use
  Company Number: TR-MERCK KGAA-1056867

PATIENT

DRUGS (1)
  1. NOVOTHYROX [Suspect]
     Active Substance: LEVOTHYROXINE SODIUM

REACTIONS (7)
  - Malaise [None]
  - Arthralgia [None]
  - Pneumonia [None]
  - Pollakiuria [None]
  - Dysuria [None]
  - Off label use [None]
  - Pyrexia [None]
